FAERS Safety Report 6372428-4 (Version None)
Quarter: 2009Q3

REPORT INFORMATION
  Report Type: 
  Country: None (occurrence: None)
  Receive Date: 20090924
  Receipt Date: 20080815
  Transmission Date: 20100115
  Serious: Yes (Other)
  Sender: FDA-Public Use
  Company Number: US-ASTRAZENECA-2008UW16706

PATIENT
  Age: 42 Year
  Sex: Female

DRUGS (3)
  1. SEROQUEL [Suspect]
     Route: 048
  2. CYMBALTA [Concomitant]
  3. ATIVAN [Concomitant]

REACTIONS (2)
  - DYSPNOEA [None]
  - HYPOAESTHESIA [None]
